FAERS Safety Report 5925318-2 (Version None)
Quarter: 2008Q4

REPORT INFORMATION
  Report Type: 
  Country: None (occurrence: None)
  Receive Date: 20081021
  Receipt Date: 20081009
  Transmission Date: 20090506
  Serious: Yes (Other)
  Sender: FDA-Public Use
  Company Number: US-ELI_LILLY_AND_COMPANY-US200810002391

PATIENT
  Age: 37 Year
  Sex: Male

DRUGS (3)
  1. ZYPREXA [Suspect]
     Indication: BIPOLAR DISORDER
     Dosage: 10 MG, UNK
     Dates: start: 20080926
  2. TRAZODIL [Concomitant]
     Indication: BIPOLAR DISORDER
  3. KLONOPIN [Concomitant]
     Indication: ANXIETY

REACTIONS (1)
  - RENAL FAILURE ACUTE [None]
